FAERS Safety Report 20620892 (Version 1)
Quarter: 2022Q1

REPORT INFORMATION
  Report Type: Spontaneous
  Country: CA (occurrence: None)
  Receive Date: 20220321
  Receipt Date: 20220321
  Transmission Date: 20220423
  Serious: Yes (Hospitalization, Disabling, Other)
  Sender: FDA-Public Use
  Company Number: None

PATIENT
  Age: 46 Year
  Sex: Male
  Weight: 91.8 kg

DRUGS (4)
  1. TOPIRAMATE [Suspect]
     Active Substance: TOPIRAMATE
     Indication: Migraine
     Dosage: OTHER QUANTITY : 2 TABLET(S);?
     Route: 048
  2. BUPROPION HYDROCHLORIDE XL [Concomitant]
     Active Substance: BUPROPION HYDROCHLORIDE
  3. Pantoprazole SODEC 40 MG [Concomitant]
  4. SERTRALINE HYDROCHLORIDE [Concomitant]
     Active Substance: SERTRALINE HYDROCHLORIDE

REACTIONS (8)
  - Spinal disorder [None]
  - Musculoskeletal disorder [None]
  - Musculoskeletal disorder [None]
  - Blindness unilateral [None]
  - Restless legs syndrome [None]
  - Amnesia [None]
  - Autoimmune disorder [None]
  - Multiple sclerosis [None]

NARRATIVE: CASE EVENT DATE: 20150102
